FAERS Safety Report 7302470-8 (Version None)
Quarter: 2011Q1

REPORT INFORMATION
  Report Type: 
  Country: None (occurrence: None)
  Receive Date: 20110218
  Receipt Date: 20110215
  Transmission Date: 20110831
  Serious: No
  Sender: FDA-Public Use
  Company Number: US-PFIZER INC-2011033732

PATIENT
  Sex: Male
  Weight: 90.703 kg

DRUGS (4)
  1. ADDERALL 10 [Concomitant]
     Dosage: UNK
  2. LIPITOR [Concomitant]
     Indication: BLOOD CHOLESTEROL INCREASED
     Dosage: UNK
  3. CAVERJECT [Suspect]
     Indication: ERECTILE DYSFUNCTION
     Dosage: 40 UG, AS NEEDED
     Route: 017
  4. XANAX [Concomitant]
     Indication: DEPRESSION
     Dosage: UNK

REACTIONS (2)
  - NEEDLE ISSUE [None]
  - PENILE PAIN [None]
